FAERS Safety Report 22625553 (Version 1)
Quarter: 2023Q2

REPORT INFORMATION
  Report Type: Spontaneous
  Country: GR (occurrence: GR)
  Receive Date: 20230621
  Receipt Date: 20230621
  Transmission Date: 20230722
  Serious: Yes (Other)
  Sender: FDA-Public Use
  Company Number: GR-SUN PHARMACEUTICAL INDUSTRIES LTD-2023R1-393459

PATIENT
  Age: 32 Year
  Sex: Male

DRUGS (3)
  1. DOXORUBICIN [Suspect]
     Active Substance: DOXORUBICIN
     Indication: Adenocarcinoma
     Dosage: 50 MILLIGRAM
     Route: 065
  2. CYCLOPHOSPHAMIDE [Concomitant]
     Active Substance: CYCLOPHOSPHAMIDE
     Indication: Adenocarcinoma
     Dosage: 500 MILLIGRAM
     Route: 065
  3. CISPLATIN [Concomitant]
     Active Substance: CISPLATIN
     Indication: Adenocarcinoma
     Dosage: 50 MILLIGRAM
     Route: 065

REACTIONS (2)
  - Tumour lysis syndrome [Unknown]
  - Myasthenia gravis [Unknown]
